FAERS Safety Report 4999848-4 (Version None)
Quarter: 2006Q2

REPORT INFORMATION
  Report Type: 
  Country: None (occurrence: None)
  Receive Date: 20060509
  Receipt Date: 20060504
  Transmission Date: 20061013
  Serious: Yes (Hospitalization)
  Sender: FDA-Public Use
  Company Number: FRP06000494

PATIENT
  Age: 76 Year
  Sex: Female

DRUGS (3)
  1. ACTONEL [Suspect]
     Dosage: 5 MG, DAILY, ORAL
     Route: 048
     Dates: end: 20060226
  2. IXPRIM (TRAMADOL HYDROCHLORIDE, PARACETAMOL) [Suspect]
     Dosage: ORAL
     Route: 048
     Dates: start: 20051208, end: 20060120
  3. ART 50(DIACEREIN) [Suspect]
     Dosage: ORAL
     Route: 048
     Dates: end: 20060226

REACTIONS (4)
  - ABDOMINAL PAIN [None]
  - ANAEMIA [None]
  - GASTROINTESTINAL HAEMORRHAGE [None]
  - SERUM FERRITIN DECREASED [None]
